FAERS Safety Report 5775045-X (Version None)
Quarter: 2008Q2

REPORT INFORMATION
  Report Type: 
  Country: None (occurrence: None)
  Receive Date: 20080617
  Receipt Date: 20080617
  Transmission Date: 20081010
  Serious: Yes (Hospitalization)
  Sender: FDA-Public Use
  Company Number: None

PATIENT
  Age: 84 Year
  Sex: Male
  Weight: 82 kg

DRUGS (5)
  1. HEPARIN [Suspect]
     Indication: PROPHYLAXIS
     Dosage: 5000 UNITS SQ Q 8 HR
     Route: 058
     Dates: start: 20080413, end: 20080416
  2. ASPIRIN [Concomitant]
  3. ATORVASTATIN [Concomitant]
  4. DOCUSATE [Concomitant]
  5. LANSOPRAZOLE [Concomitant]

REACTIONS (1)
  - PLATELET COUNT DECREASED [None]
